FAERS Safety Report 5689991-9 (Version None)
Quarter: 2008Q2

REPORT INFORMATION
  Report Type: 
  Country: None (occurrence: None)
  Receive Date: 20080401
  Receipt Date: 20071029
  Transmission Date: 20081010
  Serious: No
  Sender: FDA-Public Use
  Company Number: A0678869A

PATIENT
  Age: 67 Year
  Sex: Female

DRUGS (2)
  1. FLOVENT [Suspect]
     Indication: ASTHMA
     Dosage: 1PUFF TWICE PER DAY
     Route: 055
     Dates: start: 19970101
  2. SYNTHROID [Concomitant]

REACTIONS (2)
  - DRY THROAT [None]
  - DYSPHONIA [None]
